FAERS Safety Report 8511116-2 (Version None)
Quarter: 2012Q3

REPORT INFORMATION
  Report Type: 
  Country: None (occurrence: None)
  Receive Date: 20120716
  Receipt Date: 20120709
  Transmission Date: 20120928
  Serious: Yes (Other)
  Sender: FDA-Public Use
  Company Number: FR-JNJFOC-20120705590

PATIENT
  Sex: Female
  Weight: 45 kg

DRUGS (12)
  1. INTELENCE [Suspect]
     Route: 048
     Dates: start: 20111228
  2. VIREAD [Concomitant]
     Route: 048
     Dates: start: 20111228
  3. INTELENCE [Suspect]
     Route: 048
     Dates: start: 20100118, end: 20101201
  4. FLUCONAZOLE [Concomitant]
     Indication: ORAL CANDIDIASIS
     Route: 048
     Dates: start: 20120102
  5. LEVOFLOXACIN [Concomitant]
     Indication: SINUSITIS
     Route: 048
     Dates: start: 20120102
  6. INTELENCE [Suspect]
     Indication: HIV INFECTION
     Route: 048
     Dates: start: 20101201, end: 20111001
  7. REYATAZ [Concomitant]
     Indication: HIV INFECTION
     Route: 048
     Dates: start: 20111228
  8. BACTRIM [Concomitant]
     Route: 048
     Dates: start: 20111228
  9. ZIAGEN [Concomitant]
     Indication: HIV INFECTION
     Route: 048
     Dates: start: 20100118, end: 20101001
  10. FUNGIZONE [Concomitant]
     Indication: ORAL CANDIDIASIS
     Route: 048
  11. ISENTRESS [Concomitant]
     Indication: HIV INFECTION
     Route: 048
     Dates: start: 20100118, end: 20111001
  12. VIREAD [Concomitant]
     Indication: HIV INFECTION
     Route: 048
     Dates: start: 20101001, end: 20111001

REACTIONS (3)
  - DYSTONIA [None]
  - NIGHTMARE [None]
  - ACCIDENTAL OVERDOSE [None]
